FAERS Safety Report 25645789 (Version 1)
Quarter: 2025Q3

REPORT INFORMATION
  Report Type: Report from Study
  Country: US (occurrence: US)
  Receive Date: 20250805
  Receipt Date: 20250805
  Transmission Date: 20251021
  Serious: Yes (Other)
  Sender: ABBVIE
  Company Number: US-ABBVIE-5382220

PATIENT
  Sex: Male

DRUGS (1)
  1. RINVOQ [Suspect]
     Active Substance: UPADACITINIB
     Indication: Rheumatoid arthritis
     Route: 048
     Dates: start: 20191219

REACTIONS (7)
  - Meniscus injury [Recovered/Resolved]
  - Bone cyst [Recovered/Resolved]
  - Bacterial infection [Unknown]
  - Therapeutic product effect decreased [Unknown]
  - Osteoarthritis [Recovered/Resolved]
  - Rheumatoid arthritis [Unknown]
  - Scar [Unknown]
